FAERS Safety Report 24097657 (Version 1)
Quarter: 2024Q3

REPORT INFORMATION
  Report Type: Spontaneous
  Country: US (occurrence: US)
  Receive Date: 20240716
  Receipt Date: 20240716
  Transmission Date: 20241016
  Serious: Yes (Hospitalization)
  Sender: FRESENIUS KABI
  Company Number: US-FreseniusKabi-FK202411151

PATIENT
  Age: 69 Year
  Sex: Female

DRUGS (14)
  1. METHOTREXATE [Suspect]
     Active Substance: METHOTREXATE
     Indication: Invasive ductal breast carcinoma
     Dosage: CONCLUDED IN NOVEMBER 2019. HER FIRST REGIMEN WAS 2 ROUNDS OF DOSE-ADJUSTED RITUXIMAB, ETOPOSIDE, PR
     Route: 037
     Dates: end: 201911
  2. METHOTREXATE [Suspect]
     Active Substance: METHOTREXATE
     Indication: Diffuse large B-cell lymphoma stage III
  3. RITUXIMAB [Concomitant]
     Active Substance: RITUXIMAB
     Indication: Invasive ductal breast carcinoma
     Dosage: CONCLUDED IN NOVEMBER 2019. HER FIRST REGIMEN WAS 2 ROUNDS OF DOSE-ADJUSTED RITUXIMAB, ETOPOSIDE, PR
     Dates: end: 201911
  4. RITUXIMAB [Concomitant]
     Active Substance: RITUXIMAB
     Indication: Diffuse large B-cell lymphoma stage III
  5. ETOPOSIDE [Concomitant]
     Active Substance: ETOPOSIDE
     Indication: Invasive ductal breast carcinoma
     Dosage: CONCLUDED IN NOVEMBER 2019. HER FIRST REGIMEN WAS 2 ROUNDS OF DOSE-ADJUSTED RITUXIMAB, ETOPOSIDE, PR
     Dates: end: 201911
  6. ETOPOSIDE [Concomitant]
     Active Substance: ETOPOSIDE
     Indication: Diffuse large B-cell lymphoma stage III
  7. PREDNISONE [Concomitant]
     Active Substance: PREDNISONE
     Indication: Invasive ductal breast carcinoma
     Dosage: CONCLUDED IN NOVEMBER 2019. HER FIRST REGIMEN WAS 2 ROUNDS OF DOSE-ADJUSTED RITUXIMAB, ETOPOSIDE, PR
     Dates: end: 201911
  8. PREDNISONE [Concomitant]
     Active Substance: PREDNISONE
     Indication: Diffuse large B-cell lymphoma stage III
  9. VINCRISTINE [Concomitant]
     Active Substance: VINCRISTINE
     Indication: Invasive ductal breast carcinoma
     Dosage: CONCLUDED IN NOVEMBER 2019. HER FIRST REGIMEN WAS 2 ROUNDS OF DOSE-ADJUSTED RITUXIMAB, ETOPOSIDE, PR
  10. VINCRISTINE [Concomitant]
     Active Substance: VINCRISTINE
     Indication: Diffuse large B-cell lymphoma stage III
  11. CYCLOPHOSPHAMIDE [Concomitant]
     Active Substance: CYCLOPHOSPHAMIDE
     Indication: Invasive ductal breast carcinoma
     Dosage: CONCLUDED IN NOVEMBER 2019. HER FIRST REGIMEN WAS 2 ROUNDS OF DOSE-ADJUSTED RITUXIMAB, ETOPOSIDE, PR
     Dates: end: 201911
  12. CYCLOPHOSPHAMIDE [Concomitant]
     Active Substance: CYCLOPHOSPHAMIDE
     Indication: Diffuse large B-cell lymphoma stage III
  13. DOXORUBICIN [Concomitant]
     Active Substance: DOXORUBICIN
     Indication: Invasive ductal breast carcinoma
     Dosage: CONCLUDED IN NOVEMBER 2019. HER FIRST REGIMEN WAS 2 ROUNDS OF DOSE-ADJUSTED RITUXIMAB, ETOPOSIDE, PR
     Dates: end: 201911
  14. DOXORUBICIN [Concomitant]
     Active Substance: DOXORUBICIN
     Indication: Diffuse large B-cell lymphoma stage III

REACTIONS (1)
  - Radiculopathy [Recovering/Resolving]
